FAERS Safety Report 16375133 (Version 1)
Quarter: 2019Q2

REPORT INFORMATION
  Report Type: Spontaneous
  Country: US (occurrence: US)
  Receive Date: 20190531
  Receipt Date: 20190531
  Transmission Date: 20190711
  Serious: No
  Sender: FDA-Public Use
  Company Number: US-ELI_LILLY_AND_COMPANY-US201905003979

PATIENT
  Sex: Female

DRUGS (3)
  1. BASAGLAR [Suspect]
     Active Substance: INSULIN GLARGINE
     Indication: TYPE 2 DIABETES MELLITUS
     Dosage: 88 U, EVENING
     Route: 065
     Dates: start: 2017
  2. METFORMIN [Concomitant]
     Active Substance: METFORMIN HYDROCHLORIDE
     Indication: TYPE 2 DIABETES MELLITUS
     Dosage: 2 DOSAGE FORM, BID
     Route: 065
  3. BASAGLAR [Suspect]
     Active Substance: INSULIN GLARGINE
     Dosage: 88 U, EVENINING
     Route: 065
     Dates: start: 20190501

REACTIONS (9)
  - Ear infection [Recovered/Resolved]
  - Somnolence [Unknown]
  - Viral infection [Unknown]
  - Injury associated with device [Unknown]
  - Ear pain [Recovered/Resolved]
  - Seasonal allergy [Unknown]
  - Laryngitis [Recovering/Resolving]
  - Accidental underdose [Unknown]
  - Sinusitis [Recovered/Resolved]

NARRATIVE: CASE EVENT DATE: 2017
